FAERS Safety Report 14157056 (Version 1)
Quarter: 2017Q4

REPORT INFORMATION
  Report Type: Spontaneous
  Country: US (occurrence: None)
  Receive Date: 20171103
  Receipt Date: 20171103
  Transmission Date: 20180321
  Serious: No
  Sender: FDA-Public Use
  Company Number: None

PATIENT
  Age: 63 Year
  Sex: Male
  Weight: 116.58 kg

DRUGS (1)
  1. GAMMAGARD LIQUID [Suspect]
     Active Substance: HUMAN IMMUNOGLOBULIN G
     Indication: AUTOIMMUNE DISORDER
     Route: 042
     Dates: start: 20171030

REACTIONS (5)
  - Blood pressure increased [None]
  - Infusion related reaction [None]
  - Chills [None]
  - Body temperature increased [None]
  - Respiratory rate increased [None]

NARRATIVE: CASE EVENT DATE: 20171030
